FAERS Safety Report 6750444-8 (Version None)
Quarter: 2010Q2

REPORT INFORMATION
  Report Type: 
  Country: None (occurrence: None)
  Receive Date: 20100527
  Receipt Date: 20100511
  Transmission Date: 20101027
  Serious: Yes (Other)
  Sender: FDA-Public Use
  Company Number: DSA_43162_2010

PATIENT
  Age: 86 Year
  Sex: Female

DRUGS (7)
  1. DILTIAZEM HCL [Suspect]
     Indication: DRUG USE FOR UNKNOWN INDICATION
     Dosage: 90 MG BID ORAL
     Route: 048
  2. DIAMOX [Suspect]
     Indication: DRUG USE FOR UNKNOWN INDICATION
     Dosage: 250 MG QD ORAL
  3. ADANCOR  (NICORANDIL) [Suspect]
     Indication: DRUG USE FOR UNKNOWN INDICATION
     Dosage: 10 MG QD ORAL
     Route: 048
  4. LEXOMIL (BROMAZEPAM) [Suspect]
     Indication: DRUG USE FOR UNKNOWN INDICATION
     Dosage: 3 MG QD ORAL
     Route: 048
  5. EFFEXOR [Suspect]
     Indication: DRUG USE FOR UNKNOWN INDICATION
     Dosage: 37.5 MG BID ORAL
     Route: 048
  6. TRUSOPT [Concomitant]
  7. EFFERALGAN [Concomitant]

REACTIONS (2)
  - BALANCE DISORDER [None]
  - BLOOD PRESSURE ABNORMAL [None]
